FAERS Safety Report 18739367 (Version 1)
Quarter: 2021Q1

REPORT INFORMATION
  Report Type: Spontaneous
  Country: US (occurrence: US)
  Receive Date: 20210113
  Receipt Date: 20210113
  Transmission Date: 20210419
  Serious: Yes (Hospitalization)
  Sender: FDA-Public Use
  Company Number: None

PATIENT
  Age: 8 Year
  Sex: Male

DRUGS (1)
  1. TOBRAMYCIN 300MG/5 ML TOBI GEQ [Suspect]
     Active Substance: TOBRAMYCIN
     Indication: PRODUCT USED FOR UNKNOWN INDICATION
     Dosage: OTHER DOSE:1 VIAL;  BID  INH? CONTINOUSLY?
     Route: 055

REACTIONS (1)
  - Product availability issue [None]

NARRATIVE: CASE EVENT DATE: 20210102
